FAERS Safety Report 4730752-2 (Version None)
Quarter: 2005Q3

REPORT INFORMATION
  Report Type: 
  Country: None (occurrence: None)
  Receive Date: 20050725
  Receipt Date: 20050519
  Transmission Date: 20060218
  Serious: No
  Sender: FDA-Public Use
  Company Number: USA050598519

PATIENT
  Age: 56 Year
  Sex: Male

DRUGS (2)
  1. STRATTERA [Suspect]
     Indication: ATTENTION DEFICIT/HYPERACTIVITY DISORDER
     Dosage: 60 MG DAY
     Dates: start: 20041201, end: 20050401
  2. SINGULAIR (MONTELUKAST) [Concomitant]

REACTIONS (2)
  - ERECTILE DYSFUNCTION [None]
  - MICTURITION URGENCY [None]
